FAERS Safety Report 8503298-3 (Version None)
Quarter: 2012Q2

REPORT INFORMATION
  Report Type: 
  Country: None (occurrence: None)
  Receive Date: 20120405
  Receipt Date: 20100505
  Transmission Date: 20120825
  Serious: Yes (Hospitalization)
  Sender: FDA-Public Use
  Company Number: PHEH2009US06296

PATIENT
  Age: 77 Year
  Sex: Male
  Weight: 46.3 kg

DRUGS (14)
  1. IRON (IRON) [Concomitant]
  2. LEVOXYL [Concomitant]
  3. RECLAST [Suspect]
     Indication: OSTEOPOROSIS
     Dosage: 5 MG, INTRAVENOUS
     Route: 042
     Dates: start: 20090609
  4. ZANTAC [Concomitant]
  5. SYNTHROID (ILEVOTHYROXINE SODIUM) [Concomitant]
  6. VITAMIN B12 [Concomitant]
  7. CARAFATE [Concomitant]
  8. VITAMIN D [Concomitant]
  9. POTASSIUM CHLORIDE [Concomitant]
  10. CALCIUM CARBONATE [Concomitant]
  11. NITROFURANTOIN [Concomitant]
  12. VITAMINS (NO INGREDIENTS/SUBSTANCES) [Concomitant]
  13. ASPIRIN [Concomitant]
  14. LOLOTIL [Concomitant]

REACTIONS (6)
  - WEIGHT DECREASED [None]
  - DIARRHOEA [None]
  - BLOOD THYROID STIMULATING HORMONE DECREASED [None]
  - PAIN IN JAW [None]
  - ORAL PAIN [None]
  - DEHYDRATION [None]
